FAERS Safety Report 8006814-3 (Version None)
Quarter: 2011Q4

REPORT INFORMATION
  Report Type: 
  Country: None (occurrence: None)
  Receive Date: 20111227
  Receipt Date: 20111219
  Transmission Date: 20120403
  Serious: Yes (Hospitalization)
  Sender: FDA-Public Use
  Company Number: PHHO2011HU020627

PATIENT
  Sex: Female
  Weight: 25.5 kg

DRUGS (13)
  1. TOBRAMYCIN [Suspect]
     Indication: PSEUDOMONAS INFECTION
     Dosage: DOUBLE BLINDED
     Dates: start: 20101004, end: 20101101
  2. BLINDED NO TREATMENT RECEIVED [Suspect]
     Dosage: DOUBLE BLINDED
     Dates: start: 20101109, end: 20101206
  3. BLINDED PLACEBO [Suspect]
     Dosage: DOUBLE BLINDED
     Dates: start: 20101109, end: 20101206
  4. MONTELUKAST SODIUM [Concomitant]
     Indication: ASTHMA
     Dosage: 4 MG, UNK
     Route: 048
     Dates: start: 20090109
  5. CREON [Concomitant]
     Indication: CYSTIC FIBROSIS
     Dosage: 75 IU, UNK
     Route: 048
     Dates: start: 20041210
  6. BLINDED PLACEBO [Suspect]
     Indication: PSEUDOMONAS INFECTION
     Dosage: DOUBLE BLINDED
     Dates: start: 20101004, end: 20101101
  7. ACETYLCYSTEINE [Concomitant]
     Indication: CYSTIC FIBROSIS
     Dosage: 200 MG, TID
     Route: 048
     Dates: start: 20050211
  8. BLINDED NO TREATMENT RECEIVED [Suspect]
     Indication: PSEUDOMONAS INFECTION
     Dosage: DOUBLE BLINDED
     Dates: start: 20101004, end: 20101101
  9. TOBRAMYCIN [Suspect]
     Dosage: DOUBLE BLINDED
     Dates: start: 20101109, end: 20101206
  10. PULMICORT [Concomitant]
     Indication: ASTHMA
     Dosage: 200 G, BID
     Dates: start: 20090109
  11. AMBROXOL [Concomitant]
     Indication: CYSTIC FIBROSIS
     Dosage: 15 MG, BID
     Route: 048
     Dates: start: 20111207
  12. FLUTICASONE PROPIONATE/SALMETEROL [Concomitant]
     Indication: CYSTIC FIBROSIS
     Dosage: 2 X 1 INH
     Dates: start: 20111208
  13. MONTELUKAST SODIUM [Concomitant]
     Indication: CYSTIC FIBROSIS

REACTIONS (1)
  - STAPHYLOCOCCAL INFECTION [None]
